FAERS Safety Report 21528922 (Version 1)
Quarter: 2022Q4

REPORT INFORMATION
  Report Type: Spontaneous
  Country: US (occurrence: US)
  Receive Date: 20221031
  Receipt Date: 20221031
  Transmission Date: 20230112
  Serious: No
  Sender: FDA-Public Use
  Company Number: US-BIOVITRUM-2022US12482

PATIENT
  Sex: Male
  Weight: 9 kg

DRUGS (3)
  1. SYNAGIS [Suspect]
     Active Substance: PALIVIZUMAB
     Indication: Low birth weight baby
  2. SYNAGIS [Suspect]
     Active Substance: PALIVIZUMAB
     Indication: Premature baby
  3. SYNAGIS [Suspect]
     Active Substance: PALIVIZUMAB
     Indication: Spinal muscular atrophy

REACTIONS (1)
  - Ear infection [Not Recovered/Not Resolved]
